FAERS Safety Report 12220513 (Version 2)
Quarter: 2016Q2

REPORT INFORMATION
  Report Type: Spontaneous
  Country: US (occurrence: US)
  Receive Date: 20160330
  Receipt Date: 20160624
  Transmission Date: 20160815
  Serious: Yes (Other)
  Sender: FDA-Public Use
  Company Number: US-AUROBINDO-AUR-APU-2016-03829

PATIENT
  Age: 76 Year
  Sex: Female

DRUGS (2)
  1. VICODIN HP [Concomitant]
     Active Substance: ACETAMINOPHEN\HYDROCODONE BITARTRATE
     Indication: PRODUCT USED FOR UNKNOWN INDICATION
     Route: 065
  2. OXYCODONE AND ACETAMINOPHEN TABLETS USP, 10 MG/325 MG [Suspect]
     Active Substance: ACETAMINOPHEN\OXYCODONE HYDROCHLORIDE
     Indication: PAIN
     Dosage: TAKINQ A HALF TABLET FOR EVERY 4 HOURS
     Route: 065
     Dates: start: 20160118, end: 20160316

REACTIONS (1)
  - Mouth haemorrhage [Not Recovered/Not Resolved]
